FAERS Safety Report 10170668 (Version 1)
Quarter: 2014Q2

REPORT INFORMATION
  Report Type: Spontaneous
  Country: FR (occurrence: FR)
  Receive Date: 20140514
  Receipt Date: 20140514
  Transmission Date: 20141212
  Serious: Yes (Hospitalization)
  Sender: FDA-Public Use
  Company Number: FR-AMGEN-FRASP2014033882

PATIENT
  Age: 55 Year
  Sex: Female

DRUGS (6)
  1. XGEVA [Suspect]
     Indication: METASTASES TO BONE
     Dosage: 120 MG, Q4WK
     Route: 058
     Dates: start: 20131226, end: 20140326
  2. FENOFIBRATE [Concomitant]
     Dosage: 160 MG, QD
     Route: 048
  3. GLUCOPHAGE [Concomitant]
     Dosage: 850 MG, BID
     Route: 048
  4. LEVOTHYROX [Concomitant]
     Dosage: 150 MUG, QD
     Route: 048
  5. ZOMETA [Concomitant]
     Dosage: UNK
     Dates: start: 2012
  6. OMEPRAZOLE [Concomitant]
     Dosage: 20 MG, QD
     Route: 048

REACTIONS (1)
  - Posterior reversible encephalopathy syndrome [Not Recovered/Not Resolved]
